FAERS Safety Report 16901875 (Version 2)
Quarter: 2019Q4

REPORT INFORMATION
  Report Type: Report from Study
  Country: US (occurrence: US)
  Receive Date: 20191010
  Receipt Date: 20191024
  Transmission Date: 20200122
  Serious: Yes (Other)
  Sender: FDA-Public Use
  Company Number: US-ROCHE-2429068

PATIENT
  Sex: Female

DRUGS (1)
  1. OCREVUS [Suspect]
     Active Substance: OCRELIZUMAB
     Indication: RELAPSING MULTIPLE SCLEROSIS
     Dosage: INFUSE 300 MG X 2 DOSES 14 DAYS APART THEN 600 MG EVERY 6 MONTHS?NEXT DATE OF OCRELIZUMAB ADMINISTRA
     Route: 065
     Dates: start: 20190416

REACTIONS (1)
  - Rabies [Unknown]
